FAERS Safety Report 9938536 (Version 2)
Quarter: 2014Q4

REPORT INFORMATION
  Report Type: Spontaneous
  Country: FR (occurrence: FR)
  Receive Date: 20140303
  Receipt Date: 20141029
  Transmission Date: 20150529
  Serious: Yes (Other)
  Sender: FDA-Public Use
  Company Number: FR-AMGEN-FRASP2014013544

PATIENT
  Age: 72 Year
  Sex: Male

DRUGS (3)
  1. ARANESP [Suspect]
     Active Substance: DARBEPOETIN ALFA
     Indication: MYELODYSPLASTIC SYNDROME
     Dosage: 300 MUG, QWK
     Route: 042
     Dates: start: 201301
  2. VIDAZA [Suspect]
     Active Substance: AZACITIDINE
     Indication: MYELODYSPLASTIC SYNDROME
     Dosage: 75 MG/M2, DAY 1 TO DAY 7
     Route: 058
     Dates: start: 20121211
  3. AZACITIDINE. [Concomitant]
     Active Substance: AZACITIDINE

REACTIONS (2)
  - Amaurosis [Recovering/Resolving]
  - Retinal vein occlusion [Recovering/Resolving]

NARRATIVE: CASE EVENT DATE: 20130221
